FAERS Safety Report 5044180-6 (Version None)
Quarter: 2006Q2

REPORT INFORMATION
  Report Type: 
  Country: None (occurrence: None)
  Receive Date: 20060629
  Receipt Date: 20060620
  Transmission Date: 20061013
  Serious: Yes (Other)
  Sender: FDA-Public Use
  Company Number: 430068K06USA

PATIENT
  Age: 38 Year
  Sex: Female

DRUGS (4)
  1. NOVANTRONE [Suspect]
     Indication: MULTIPLE SCLEROSIS
     Dosage: 12 MG/M2, 1 IN 3 MONTHS,
     Dates: start: 20031001, end: 20050419
  2. LORAZEPAM [Concomitant]
  3. IMITREX [Concomitant]
  4. IRON SUPPLEMENT (IRON) [Concomitant]

REACTIONS (1)
  - EJECTION FRACTION DECREASED [None]
